FAERS Safety Report 13456229 (Version 2)
Quarter: 2017Q4

REPORT INFORMATION
  Report Type: Report from Study
  Country: US (occurrence: US)
  Receive Date: 20170419
  Receipt Date: 20171031
  Transmission Date: 20180320
  Serious: No
  Sender: FDA-Public Use
  Company Number: PHHY2017US056538

PATIENT
  Age: 47 Year
  Sex: Female

DRUGS (1)
  1. GILENYA [Suspect]
     Active Substance: FINGOLIMOD HYDROCHLORIDE
     Indication: MULTIPLE SCLEROSIS
     Dosage: UNK, QD
     Route: 048

REACTIONS (9)
  - White blood cell count decreased [Unknown]
  - Presbyopia [Unknown]
  - Melanocytic naevus [Unknown]
  - Skin papilloma [Unknown]
  - Heart rate decreased [Recovered/Resolved]
  - Dizziness [Unknown]
  - Seborrhoeic keratosis [Unknown]
  - Headache [Unknown]
  - Lymphocyte count decreased [Unknown]

NARRATIVE: CASE EVENT DATE: 20170213
